FAERS Safety Report 18489041 (Version 1)
Quarter: 2020Q4

REPORT INFORMATION
  Report Type: Spontaneous
  Country: JP (occurrence: JP)
  Receive Date: 20201110
  Receipt Date: 20201110
  Transmission Date: 20210114
  Serious: Yes (Death, Hospitalization, Other)
  Sender: FDA-Public Use
  Company Number: JP-009507513-2010JPN002377J

PATIENT
  Age: 8 Decade
  Sex: Female

DRUGS (2)
  1. KEYTRUDA [Suspect]
     Active Substance: PEMBROLIZUMAB
     Indication: RENAL CELL CARCINOMA STAGE IV
     Dosage: 200 MILLIGRAM, Q3W
     Route: 041
     Dates: start: 202009, end: 2020
  2. INLYTA [Concomitant]
     Active Substance: AXITINIB
     Dosage: 5 MILLIGRAM, BID
     Route: 048
     Dates: start: 202009, end: 2020

REACTIONS (2)
  - Immune-mediated hyperthyroidism [Fatal]
  - Thyrotoxic crisis [Unknown]

NARRATIVE: CASE EVENT DATE: 202010
